FAERS Safety Report 16139401 (Version 1)
Quarter: 2019Q1

REPORT INFORMATION
  Report Type: Spontaneous
  Country: DE (occurrence: DE)
  Receive Date: 20190330
  Receipt Date: 20190330
  Transmission Date: 20190418
  Serious: Yes (Other)
  Sender: FDA-Public Use
  Company Number: PHHY2019DE070061

PATIENT
  Age: 60 Year
  Sex: Female
  Weight: 70 kg

DRUGS (4)
  1. DOCETAXEL. [Suspect]
     Active Substance: DOCETAXEL
     Indication: NON-SMALL CELL LUNG CANCER
     Dosage: 75 MG/M2, QD (DOSE PER APPLICATION/DAILY DOSE: 75 MG/M2 BODY SURFACE AREA; FORMULATION LIQUID)
     Route: 042
  2. VARGATEF [Suspect]
     Active Substance: NINTEDANIB
     Dosage: 100 MG, QD (DAILY DOSE: 200 MG MILLIGRAM(S) EVERY DAY)
     Route: 048
     Dates: start: 20150624
  3. VARGATEF [Suspect]
     Active Substance: NINTEDANIB
     Dosage: 100 MG, QD (DAILY DOSE: 200 MG MILLIGRAM(S) EVERY DAY)
     Route: 048
     Dates: start: 20150526
  4. VARGATEF [Suspect]
     Active Substance: NINTEDANIB
     Indication: NON-SMALL CELL LUNG CANCER
     Dosage: 200 MG, QD (DAILY DOSE: 400 MG MILLIGRAM(S) EVERY DAY)
     Route: 048
     Dates: start: 20150424

REACTIONS (7)
  - Vomiting [Recovered/Resolved]
  - Constipation [Recovered/Resolved]
  - Obstruction gastric [Recovered/Resolved]
  - Fatigue [Recovered/Resolved]
  - Vomiting [Recovered/Resolved]
  - Bone pain [Recovered/Resolved]
  - Hyperhidrosis [Recovered/Resolved]

NARRATIVE: CASE EVENT DATE: 20150515
